FAERS Safety Report 5802513-4 (Version None)
Quarter: 2008Q2

REPORT INFORMATION
  Report Type: 
  Country: None (occurrence: None)
  Receive Date: 20080627
  Receipt Date: 20080508
  Transmission Date: 20081010
  Serious: Yes (Other)
  Sender: FDA-Public Use
  Company Number: CTI_00968_2008

PATIENT
  Age: 42 Year
  Sex: Male

DRUGS (1)
  1. ZYFLO CR [Suspect]
     Indication: DRUG USE FOR UNKNOWN INDICATION
     Dosage: (DF)

REACTIONS (1)
  - GAMMA-GLUTAMYLTRANSFERASE INCREASED [None]
